FAERS Safety Report 23030445 (Version 1)
Quarter: 2023Q4

REPORT INFORMATION
  Report Type: Spontaneous
  Country: US (occurrence: US)
  Receive Date: 20231005
  Receipt Date: 20231005
  Transmission Date: 20240109
  Serious: No
  Sender: FDA-Public Use
  Company Number: US-JNJFOC-20230944253

PATIENT
  Age: 46 Year
  Sex: Female
  Weight: 95.2 kg

DRUGS (19)
  1. TYLENOL [Suspect]
     Active Substance: ACETAMINOPHEN
     Indication: Headache
     Route: 065
     Dates: start: 2023
  2. TREPROSTINIL [Concomitant]
     Active Substance: TREPROSTINIL
     Indication: Pulmonary arterial hypertension
     Dosage: EXTENDED RELEASE TABLET
     Route: 048
     Dates: start: 20230329
  3. TREPROSTINIL [Concomitant]
     Active Substance: TREPROSTINIL
     Dosage: EXTENDED RELEASE TABLET
     Route: 048
     Dates: end: 2023
  4. TREPROSTINIL [Concomitant]
     Active Substance: TREPROSTINIL
     Dosage: EXTENDED RELEASE TABLET
     Route: 048
     Dates: start: 2023, end: 2023
  5. TREPROSTINIL [Concomitant]
     Active Substance: TREPROSTINIL
     Dosage: EXTENDED RELEASE TABLET
     Route: 048
     Dates: start: 2023, end: 2023
  6. TREPROSTINIL [Concomitant]
     Active Substance: TREPROSTINIL
     Dosage: EXTENDED RELEASE TABLET
     Route: 048
     Dates: start: 2023, end: 2023
  7. TREPROSTINIL [Concomitant]
     Active Substance: TREPROSTINIL
     Dosage: EXTENDED RELEASE TABLET
     Route: 048
     Dates: start: 2023, end: 2023
  8. TREPROSTINIL [Concomitant]
     Active Substance: TREPROSTINIL
     Dosage: EXTENDED RELEASE TABLET
     Route: 048
     Dates: start: 2023
  9. SILDENAFIL CITRATE [Concomitant]
     Active Substance: SILDENAFIL CITRATE
     Indication: Product used for unknown indication
     Route: 065
  10. NIFEDIPINE [Concomitant]
     Active Substance: NIFEDIPINE
     Indication: Product used for unknown indication
     Route: 065
  11. VICTOZA [Concomitant]
     Active Substance: LIRAGLUTIDE
     Indication: Product used for unknown indication
     Route: 065
  12. FUROSEMIDE [Concomitant]
     Active Substance: FUROSEMIDE
     Indication: Product used for unknown indication
     Route: 065
  13. ATORVASTATIN [Concomitant]
     Active Substance: ATORVASTATIN
     Indication: Product used for unknown indication
     Route: 065
  14. SIMETHICONE (DIMETHICONE) [Concomitant]
     Active Substance: DIMETHICONE
     Indication: Product used for unknown indication
     Route: 065
  15. TRIAMCINOLONE [Concomitant]
     Active Substance: TRIAMCINOLONE
     Indication: Product used for unknown indication
     Route: 065
  16. OMEPRAZOLE [Concomitant]
     Active Substance: OMEPRAZOLE
     Indication: Product used for unknown indication
     Route: 065
  17. OXYGEN [Concomitant]
     Active Substance: OXYGEN
     Indication: Product used for unknown indication
     Route: 065
  18. VITAMIN C [Concomitant]
     Active Substance: ASCORBIC ACID
     Indication: Product used for unknown indication
     Route: 065
  19. ASPIRIN [Concomitant]
     Active Substance: ASPIRIN
     Indication: Product used for unknown indication
     Route: 065

REACTIONS (1)
  - Product use in unapproved indication [Unknown]

NARRATIVE: CASE EVENT DATE: 20230101
